FAERS Safety Report 7045119-4 (Version None)
Quarter: 2010Q4

REPORT INFORMATION
  Report Type: 
  Country: None (occurrence: None)
  Receive Date: 20101014
  Receipt Date: 20101004
  Transmission Date: 20110411
  Serious: Yes (Hospitalization, Other)
  Sender: FDA-Public Use
  Company Number: US-MILLENNIUM PHARMACEUTICALS, INC.-2010-05096

PATIENT
  Sex: Male
  Weight: 84.354 kg

DRUGS (4)
  1. VELCADE [Suspect]
     Indication: PRODUCT USED FOR UNKNOWN INDICATION
     Dosage: UNK
     Dates: start: 20100723
  2. CYTOXAN [Suspect]
     Indication: PRODUCT USED FOR UNKNOWN INDICATION
     Dosage: UNK
     Dates: start: 20100723
  3. VORINOSTAT [Suspect]
     Indication: PRODUCT USED FOR UNKNOWN INDICATION
     Dosage: UNK
     Dates: start: 20100723
  4. DEXAMETHASONE [Suspect]
     Indication: PRODUCT USED FOR UNKNOWN INDICATION
     Dosage: UNK
     Dates: start: 20100723

REACTIONS (4)
  - EMBOLISM VENOUS [None]
  - FEBRILE NEUTROPENIA [None]
  - MENTAL STATUS CHANGES [None]
  - PNEUMOCYSTIS JIROVECI PNEUMONIA [None]
